FAERS Safety Report 13562248 (Version 1)
Quarter: 2017Q2

REPORT INFORMATION
  Report Type: Spontaneous
  Country: IT (occurrence: IT)
  Receive Date: 20170519
  Receipt Date: 20170519
  Transmission Date: 20170830
  Serious: Yes (Other)
  Sender: FDA-Public Use
  Company Number: IT-009507513-1705ITA002130

PATIENT
  Age: 55 Year
  Sex: Female
  Weight: 50 kg

DRUGS (5)
  1. SINVACOR 10 MG COMPRESSE RIVESTITE CON FILM [Suspect]
     Active Substance: SIMVASTATIN
     Indication: DYSLIPIDAEMIA
     Dosage: 1 DF, QD
     Route: 048
  2. METHOTREXATE. [Suspect]
     Active Substance: METHOTREXATE
     Indication: SERONEGATIVE ARTHRITIS
     Dosage: 1 DF, QW
     Route: 030
  3. CALCIFEDIOL [Concomitant]
     Active Substance: CALCIFEDIOL
     Dosage: UNKNOWN
     Route: 048
  4. ENALAPRIL MALEATE. [Suspect]
     Active Substance: ENALAPRIL MALEATE
     Indication: HYPERTENSION
     Dosage: 1 DF, QD
     Route: 048
  5. LEDERFOLIN (LEVOLEUCOVORIN CALCIUM) [Concomitant]
     Dosage: UNKNOWN
     Route: 048

REACTIONS (1)
  - Pneumonia [Unknown]

NARRATIVE: CASE EVENT DATE: 20170404
